FAERS Safety Report 9602253 (Version 4)
Quarter: 2014Q2

REPORT INFORMATION
  Report Type: Spontaneous
  Country: FR (occurrence: FR)
  Receive Date: 20131007
  Receipt Date: 20140424
  Transmission Date: 20141212
  Serious: Yes (Death, Hospitalization)
  Sender: FDA-Public Use
  Company Number: FR-PFIZER INC-2013274020

PATIENT
  Age: 56 Year
  Sex: Male

DRUGS (7)
  1. EUPANTOL [Suspect]
     Indication: GASTRITIS
     Dosage: UNK
     Route: 042
     Dates: start: 20130625, end: 20130731
  2. AVLOCARDYL [Suspect]
     Indication: PORTAL HYPERTENSION
     Dosage: UNK
     Route: 042
     Dates: start: 20130713, end: 20130722
  3. FORTUM [Suspect]
     Indication: LUNG DISORDER
     Dosage: UNK
     Route: 042
     Dates: start: 20130701, end: 20130716
  4. ERYTHROCINE [Suspect]
     Dosage: UNK
     Route: 042
     Dates: start: 20130713, end: 20130724
  5. EXACYL [Suspect]
     Indication: HAEMATEMESIS
     Dosage: UNK
     Route: 042
     Dates: start: 20130706, end: 20130724
  6. CIFLOX [Suspect]
     Indication: LUNG DISORDER
     Dosage: UNK
     Route: 042
     Dates: start: 20130703, end: 20130713
  7. PRIMPERAN [Suspect]
     Indication: NAUSEA
     Dosage: UNK
     Route: 042
     Dates: start: 20130714, end: 20130724

REACTIONS (2)
  - Multi-organ failure [Fatal]
  - Rash maculo-papular [Not Recovered/Not Resolved]
